FAERS Safety Report 9862253 (Version 1)
Quarter: 2014Q1

REPORT INFORMATION
  Report Type: Spontaneous
  Country: US (occurrence: US)
  Receive Date: 20140203
  Receipt Date: 20140203
  Transmission Date: 20141002
  Serious: No
  Sender: FDA-Public Use
  Company Number: US-OPTIMER-20130414

PATIENT
  Sex: Male

DRUGS (11)
  1. DIFICID [Suspect]
     Indication: CLOSTRIDIAL INFECTION
     Dosage: 200 MG, BID
     Route: 048
     Dates: start: 201307
  2. DIFICID [Suspect]
     Dosage: 200 MG, BID
     Route: 048
     Dates: start: 201308
  3. FLOMAX [Concomitant]
     Dosage: 0.40 MG, UNK
  4. LEVOTHYROXINE [Concomitant]
     Dosage: 50 MG, UNK
  5. AMLODIPINE [Concomitant]
     Dosage: 5 MG, UNK
  6. LIPITOR [Concomitant]
     Dosage: 10 MG, UNK
  7. PREDNISONE [Concomitant]
     Dosage: UNK
  8. VITAMIN D [Concomitant]
     Dosage: 5000 U, UNK
  9. SODIUM BICARBONATE [Concomitant]
     Dosage: UNK
  10. METOPROLOL [Concomitant]
     Dosage: 200 MG, UNK
  11. ALLOPURINOL [Concomitant]
     Dosage: UNK

REACTIONS (3)
  - Clostridium difficile infection [Not Recovered/Not Resolved]
  - Disease recurrence [Not Recovered/Not Resolved]
  - Off label use [Unknown]
